FAERS Safety Report 16765450 (Version 16)
Quarter: 2021Q3

REPORT INFORMATION
  Report Type: Report from Study
  Country: BR (occurrence: BR)
  Receive Date: 20190903
  Receipt Date: 20210907
  Transmission Date: 20211014
  Serious: Yes (Hospitalization, Other)
  Sender: FDA-Public Use
  Company Number: BR-GLAXOSMITHKLINE-BR2019GSK056329

PATIENT
  Age: 52 Year
  Sex: Female
  Weight: 77 kg

DRUGS (5)
  1. TECNOMET [Concomitant]
     Active Substance: METHOTREXATE
     Dosage: 2.5 MG, 3 TIMES PER  WEEK
  2. COVID?19 VACCINE NOS. [Suspect]
     Active Substance: COVID-19 VACCINE NOS
     Indication: PRODUCT USED FOR UNKNOWN INDICATION
  3. BELIMUMAB [Suspect]
     Active Substance: BELIMUMAB
     Indication: SYSTEMIC LUPUS ERYTHEMATOSUS
     Dosage: 10 MG/KG, CYC
     Route: 042
     Dates: start: 20160523, end: 2017
  4. BELIMUMAB [Suspect]
     Active Substance: BELIMUMAB
     Dosage: UNK,CYC
     Route: 042
     Dates: start: 20210514
  5. BELIMUMAB [Suspect]
     Active Substance: BELIMUMAB
     Dosage: UNK, CYC
     Route: 042
     Dates: start: 20200416

REACTIONS (42)
  - Blood disorder [Unknown]
  - Pancreatic disorder [Unknown]
  - Blood insulin increased [Unknown]
  - Bladder pain [Not Recovered/Not Resolved]
  - Gait inability [Unknown]
  - Somnolence [Unknown]
  - Alopecia [Unknown]
  - Anaemia [Unknown]
  - Raynaud^s phenomenon [Not Recovered/Not Resolved]
  - Emotional distress [Unknown]
  - Bladder disorder [Unknown]
  - Skin disorder [Unknown]
  - Skin discolouration [Unknown]
  - Abdominal pain upper [Unknown]
  - Blood glucose decreased [Unknown]
  - Malaise [Unknown]
  - Fatigue [Unknown]
  - Urinary tract infection [Recovered/Resolved]
  - Nervousness [Unknown]
  - Torticollis [Unknown]
  - Rash macular [Unknown]
  - Hypoglycaemia [Recovered/Resolved]
  - Memory impairment [Unknown]
  - Therapy interrupted [Unknown]
  - Cerebrovascular accident [Not Recovered/Not Resolved]
  - Hypothermia [Recovered/Resolved]
  - Pain [Not Recovered/Not Resolved]
  - Arthralgia [Not Recovered/Not Resolved]
  - Sensory loss [Unknown]
  - Immune system disorder [Unknown]
  - Micturition disorder [Not Recovered/Not Resolved]
  - Product dose omission issue [Unknown]
  - Systemic lupus erythematosus [Not Recovered/Not Resolved]
  - Haematuria [Unknown]
  - Anxiety [Unknown]
  - Dysphonia [Unknown]
  - Asthenia [Unknown]
  - Incorrect dose administered [Unknown]
  - Inappropriate schedule of product administration [Not Recovered/Not Resolved]
  - Social problem [Unknown]
  - Fall [Unknown]
  - Cyclothymic disorder [Unknown]

NARRATIVE: CASE EVENT DATE: 20171017
